FAERS Safety Report 18225481 (Version 1)
Quarter: 2020Q3

REPORT INFORMATION
  Report Type: Spontaneous
  Country: US (occurrence: US)
  Receive Date: 20200903
  Receipt Date: 20200903
  Transmission Date: 20201103
  Serious: No
  Sender: FDA-Public Use
  Company Number: US-JNJFOC-20200831774

PATIENT
  Age: 66 Year
  Sex: Female
  Weight: 50.85 kg

DRUGS (1)
  1. WOMENS ROGAINE UNSCENTED [Suspect]
     Active Substance: MINOXIDIL
     Indication: ALOPECIA
     Dosage: HALF A CUP, FIRST 3 DAYS USED IT TWICE A DAY THEN AFTER STARTED ONCE?LAST DRUG ADMINISTERED ON18?AUG
     Route: 061
     Dates: start: 202008

REACTIONS (7)
  - Overdose [Unknown]
  - Alopecia [Recovered/Resolved]
  - Inappropriate schedule of product administration [Unknown]
  - Product formulation issue [Unknown]
  - Application site pain [Recovered/Resolved]
  - Application site irritation [Recovered/Resolved]
  - Product storage error [Unknown]

NARRATIVE: CASE EVENT DATE: 202008
